FAERS Safety Report 17851671 (Version 2)
Quarter: 2020Q2

REPORT INFORMATION
  Report Type: Spontaneous
  Country: US (occurrence: US)
  Receive Date: 20200602
  Receipt Date: 20200610
  Transmission Date: 20200714
  Serious: No
  Sender: FDA-Public Use
  Company Number: US-PFIZER INC-2020213925

PATIENT
  Age: 46 Year
  Sex: Male
  Weight: 165.53 kg

DRUGS (6)
  1. BRAFTOVI [Suspect]
     Active Substance: ENCORAFENIB
     Indication: HEPATIC NEOPLASM
  2. BRAFTOVI [Suspect]
     Active Substance: ENCORAFENIB
     Indication: CHOLANGIOCARCINOMA
  3. MEKTOVI [Suspect]
     Active Substance: BINIMETINIB
     Indication: HEPATIC NEOPLASM
  4. MEKTOVI [Suspect]
     Active Substance: BINIMETINIB
     Indication: CHOLANGIOCARCINOMA
  5. MEKTOVI [Suspect]
     Active Substance: BINIMETINIB
     Indication: BONE CANCER
     Dosage: 45 MG, 2X/DAY (3 TABLETS OF 15MG EVERY 12 HOURS)
     Route: 048
     Dates: start: 20191205, end: 20200508
  6. BRAFTOVI [Suspect]
     Active Substance: ENCORAFENIB
     Indication: BONE CANCER
     Dosage: 450 MG, 1X/DAY(6 CAPSULES OF 75MG ONCE A DAY)
     Route: 048
     Dates: start: 20191205, end: 20200508

REACTIONS (1)
  - Adverse event [Unknown]
